FAERS Safety Report 5971362-9 (Version None)
Quarter: 2008Q4

REPORT INFORMATION
  Report Type: 
  Country: None (occurrence: None)
  Receive Date: 20081130
  Receipt Date: 20081121
  Transmission Date: 20090506
  Serious: Yes (Other)
  Sender: FDA-Public Use
  Company Number: US-PFIZER INC-2008052027

PATIENT
  Sex: Male
  Weight: 65.8 kg

DRUGS (1)
  1. CHANTIX [Suspect]
     Indication: SMOKING CESSATION THERAPY
     Route: 048
     Dates: start: 20080529

REACTIONS (5)
  - ANXIETY [None]
  - IMPAIRED WORK ABILITY [None]
  - NERVOUSNESS [None]
  - SOCIAL PROBLEM [None]
  - SPEECH DISORDER [None]
